FAERS Safety Report 11984423 (Version 1)
Quarter: 2016Q1

REPORT INFORMATION
  Report Type: Report from Study
  Country: CA (occurrence: CA)
  Receive Date: 20160201
  Receipt Date: 20160201
  Transmission Date: 20160526
  Serious: Yes (Other)
  Sender: FDA-Public Use
  Company Number: CA-WARNER CHILCOTT, LLC-1047163

PATIENT
  Age: 58 Year
  Sex: Female

DRUGS (5)
  1. ASACOL [Concomitant]
     Active Substance: MESALAMINE
  2. ACTONEL [Suspect]
     Active Substance: RISEDRONATE SODIUM
  3. IMURAN [Suspect]
     Active Substance: AZATHIOPRINE
  4. ACETAMINOPHEN. [Concomitant]
     Active Substance: ACETAMINOPHEN
  5. RITUXAN [Suspect]
     Active Substance: RITUXIMAB
     Route: 041

REACTIONS (5)
  - Sepsis [Recovered/Resolved]
  - Off label use [None]
  - White blood cell count decreased [Recovered/Resolved]
  - Arthritis [Recovered/Resolved]
  - Osteoporosis [Recovered/Resolved]
